FAERS Safety Report 8013157-0 (Version None)
Quarter: 2011Q4

REPORT INFORMATION
  Report Type: 
  Country: None (occurrence: None)
  Receive Date: 20111229
  Receipt Date: 20111227
  Transmission Date: 20120403
  Serious: No
  Sender: FDA-Public Use
  Company Number: US-PFIZER INC-2011314085

PATIENT
  Sex: Female
  Weight: 24 kg

DRUGS (4)
  1. IBUPROFEN [Concomitant]
     Indication: HEADACHE
     Dosage: UNK, AS NEEDED
  2. ZANTAC [Concomitant]
     Indication: GASTROOESOPHAGEAL REFLUX DISEASE
     Dosage: UNK
  3. ACETAMINOPHEN [Concomitant]
     Indication: HEADACHE
     Dosage: UNK, AS NEEDED
  4. GENOTROPIN [Suspect]
     Indication: GROWTH HORMONE DEFICIENCY
     Dosage: 1 MG, DAILY
     Dates: start: 20111220, end: 20111222

REACTIONS (2)
  - EMOTIONAL DISORDER [None]
  - MOOD ALTERED [None]
